FAERS Safety Report 16458078 (Version 1)
Quarter: 2019Q2

REPORT INFORMATION
  Report Type: Spontaneous
  Country: MO (occurrence: MO)
  Receive Date: 20190620
  Receipt Date: 20190620
  Transmission Date: 20190711
  Serious: Yes (Other)
  Sender: FDA-Public Use
  Company Number: PHHY2019MO137712

PATIENT
  Age: 4 Year
  Sex: Female
  Weight: 13.6 kg

DRUGS (2)
  1. DIGOXIN. [Suspect]
     Active Substance: DIGOXIN
     Indication: ATRIAL SEPTAL DEFECT
     Dosage: 50 UG, BID
     Route: 048
  2. DIGOXIN. [Suspect]
     Active Substance: DIGOXIN
     Dosage: 1.5 MG (30 ML), UNK
     Route: 048

REACTIONS (8)
  - Dizziness [Unknown]
  - Bradycardia [Unknown]
  - Vomiting [Unknown]
  - Atrioventricular block first degree [Recovered/Resolved]
  - Accidental overdose [Unknown]
  - Atrioventricular block second degree [Recovered/Resolved]
  - Toxicity to various agents [Unknown]
  - Product use in unapproved indication [Unknown]
